FAERS Safety Report 4627229-1 (Version None)
Quarter: 2005Q2

REPORT INFORMATION
  Report Type: 
  Country: None (occurrence: None)
  Receive Date: 20050401
  Receipt Date: 20050401
  Transmission Date: 20051028
  Serious: Yes (Hospitalization)
  Sender: FDA-Public Use
  Company Number: None

PATIENT
  Sex: Male

DRUGS (1)
  1. PROCHLORPERAZINE [Suspect]
     Dosage: 10MG TID PRN ORAL
     Route: 048
     Dates: start: 20050307, end: 20050307

REACTIONS (2)
  - FACIAL PAIN [None]
  - MUSCLE TWITCHING [None]
